FAERS Safety Report 5876828-8 (Version None)
Quarter: 2008Q3

REPORT INFORMATION
  Report Type: 
  Country: None (occurrence: None)
  Receive Date: 20080908
  Receipt Date: 20080908
  Transmission Date: 20090109
  Serious: Yes (Other)
  Sender: FDA-Public Use
  Company Number: None

PATIENT
  Age: 76 Year
  Sex: Female
  Weight: 57.1532 kg

DRUGS (1)
  1. ZOLPIDEM TARTRATE [Suspect]
     Indication: POOR QUALITY SLEEP
     Dosage: ONE BEDTIME PO
     Route: 048
     Dates: start: 20080105, end: 20080415

REACTIONS (2)
  - PAROSMIA [None]
  - PHARMACEUTICAL PRODUCT COMPLAINT [None]
